FAERS Safety Report 5968126-9 (Version None)
Quarter: 2008Q4

REPORT INFORMATION
  Report Type: 
  Country: None (occurrence: None)
  Receive Date: 20081126
  Receipt Date: 20081112
  Transmission Date: 20090506
  Serious: Yes (Death)
  Sender: FDA-Public Use
  Company Number: US-B.I. PHARMACEUTICALS,INC./RIDGEFIELD-2008-DE-07023GD

PATIENT

DRUGS (2)
  1. NEVIRAPINE [Suspect]
     Indication: HIV INFECTION
     Route: 048
  2. ANTIVIRALS FOR SYSTEMIC USE [Suspect]
     Indication: HIV INFECTION

REACTIONS (1)
  - DEATH [None]
